FAERS Safety Report 7131433-0 (Version None)
Quarter: 2010Q4

REPORT INFORMATION
  Report Type: 
  Country: None (occurrence: None)
  Receive Date: 20101124
  Receipt Date: 20101124
  Transmission Date: 20110411
  Serious: Yes (Life-Threatening, Hospitalization)
  Sender: FDA-Public Use
  Company Number: None

PATIENT
  Age: 55 Year
  Sex: Male
  Weight: 100 kg

DRUGS (5)
  1. AMIODARONE [Suspect]
     Indication: ATRIAL FIBRILLATION
     Dosage: 900 MG ONCE IV
     Route: 042
     Dates: start: 20100801, end: 20100801
  2. AMIODARONE [Suspect]
     Indication: SUPRAVENTRICULAR TACHYCARDIA
     Dosage: 900 MG ONCE IV
     Route: 042
     Dates: start: 20100801, end: 20100801
  3. AMIODARONE [Suspect]
     Indication: TORSADE DE POINTES
     Dosage: 900 MG ONCE IV
     Route: 042
     Dates: start: 20100801, end: 20100801
  4. AMIODARONE [Suspect]
     Indication: VENTRICULAR FIBRILLATION
     Dosage: 900 MG ONCE IV
     Route: 042
     Dates: start: 20100801, end: 20100801
  5. AMIODARONE [Suspect]
     Indication: VENTRICULAR TACHYCARDIA
     Dosage: 900 MG ONCE IV
     Route: 042
     Dates: start: 20100801, end: 20100801

REACTIONS (2)
  - CARDIAC ARREST [None]
  - TORSADE DE POINTES [None]
